FAERS Safety Report 12765740 (Version 2)
Quarter: 2016Q4

REPORT INFORMATION
  Report Type: Spontaneous
  Country: US (occurrence: US)
  Receive Date: 20160921
  Receipt Date: 20161024
  Transmission Date: 20170207
  Serious: Yes (Hospitalization)
  Sender: FDA-Public Use
  Company Number: US-JNJFOC-20160906884

PATIENT
  Age: 66 Year
  Sex: Female

DRUGS (4)
  1. XARELTO [Suspect]
     Active Substance: RIVAROXABAN
     Indication: PULMONARY EMBOLISM
     Dosage: IN VARYING DOSES OF 15MG, 20 MG
     Route: 048
     Dates: start: 20151130
  2. XARELTO [Suspect]
     Active Substance: RIVAROXABAN
     Indication: THROMBOSIS PROPHYLAXIS
     Dosage: IN VARYING DOSES OF 15MG, 20 MG
     Route: 048
     Dates: start: 20151130
  3. XARELTO [Suspect]
     Active Substance: RIVAROXABAN
     Indication: THROMBOSIS PROPHYLAXIS
     Dosage: IN VARYING DOSES OF 15MG, 20 MG
     Route: 048
     Dates: start: 201603, end: 20160705
  4. XARELTO [Suspect]
     Active Substance: RIVAROXABAN
     Indication: PULMONARY EMBOLISM
     Dosage: IN VARYING DOSES OF 15MG, 20 MG
     Route: 048
     Dates: start: 201603, end: 20160705

REACTIONS (2)
  - Upper gastrointestinal haemorrhage [Recovering/Resolving]
  - Acute kidney injury [Recovered/Resolved]

NARRATIVE: CASE EVENT DATE: 20160705
